FAERS Safety Report 6983483-2 (Version None)
Quarter: 2010Q3

REPORT INFORMATION
  Report Type: 
  Country: None (occurrence: None)
  Receive Date: 20100914
  Receipt Date: 20080811
  Transmission Date: 20110219
  Serious: No
  Sender: FDA-Public Use
  Company Number: US-WYE-H05565108

PATIENT
  Age: 79 Year
  Sex: Female
  Weight: 62.65 kg

DRUGS (4)
  1. ADVIL LIQUI-GELS [Suspect]
     Indication: PAIN
     Route: 048
     Dates: start: 20080807, end: 20080809
  2. SYNTHROID [Concomitant]
  3. FISH OIL, HYDROGENATED [Concomitant]
  4. RELAFEN [Concomitant]

REACTIONS (3)
  - FATIGUE [None]
  - OVERDOSE [None]
  - SLUGGISHNESS [None]
